FAERS Safety Report 10876964 (Version 1)
Quarter: 2015Q1

REPORT INFORMATION
  Report Type: Spontaneous
  Country: US (occurrence: US)
  Receive Date: 20150302
  Receipt Date: 20150302
  Transmission Date: 20150721
  Serious: Yes (Other)
  Sender: FDA-Public Use
  Company Number: US-ACCORD-028938

PATIENT
  Age: 16 Year
  Sex: Female

DRUGS (9)
  1. SULFAMETHOXAZOLE/SULFAMETHOXAZOLE SODIUM [Concomitant]
     Indication: PROPHYLAXIS
  2. ANTITHYMOCYTE IMMUNOGLOBULIN [Concomitant]
     Active Substance: THYMOCYTE IMMUNE GLOBULIN NOS
  3. TRIMETHOPRIM/TRIMETHOPRIM LACTATE/TRIMETHOPRIM SULFATE [Concomitant]
     Indication: PROPHYLAXIS
  4. AMLODIPINE [Concomitant]
     Active Substance: AMLODIPINE BESYLATE
     Indication: HYPERTENSION
  5. TACROLIMUS. [Suspect]
     Active Substance: TACROLIMUS
     Indication: IMMUNOSUPPRESSION
     Dosage: GOAL WAS TROUGH LEVEL OF 8-10 NG/ML
  6. VALGANCICLOVIR/VALGANCICLOVIR HYDROCHLORIDE [Concomitant]
     Indication: PROPHYLAXIS
  7. NYSTATIN/NYSTATIN/LIPOSOME [Concomitant]
     Indication: PROPHYLAXIS
  8. PREDNISONE/PREDNISONE ACETATE [Suspect]
     Active Substance: PREDNISONE
     Indication: IMMUNOSUPPRESSION
  9. MYCOPHENOLIC ACID. [Suspect]
     Active Substance: MYCOPHENOLIC ACID
     Indication: IMMUNOSUPPRESSION
     Dosage: STARTING DOSE OF 600 MG/ M2/DAY, REDUCED TO 300 MG/M2/DAY AND THEN TO 250 MG.

REACTIONS (13)
  - Weight decreased [Recovered/Resolved]
  - Bradycardia [Recovered/Resolved]
  - Neutropenia [Recovered/Resolved]
  - Syncope [Unknown]
  - Anorexia nervosa [Recovered/Resolved]
  - Alopecia [Recovering/Resolving]
  - Diarrhoea [Recovered/Resolved]
  - Cachexia [Unknown]
  - Dizziness [Recovered/Resolved]
  - Leukopenia [Unknown]
  - Kidney transplant rejection [Unknown]
  - Amenorrhoea [Recovered/Resolved]
  - Lymphocele [Recovered/Resolved]
